FAERS Safety Report 7508669-X (Version None)
Quarter: 2011Q2

REPORT INFORMATION
  Report Type: 
  Country: None (occurrence: None)
  Receive Date: 20110527
  Receipt Date: 20100521
  Transmission Date: 20111010
  Serious: No
  Sender: FDA-Public Use
  Company Number: A0860865A

PATIENT
  Age: 69 Year
  Sex: Female

DRUGS (6)
  1. ASPIRIN [Concomitant]
  2. VENTOLIN [Suspect]
     Indication: EMPHYSEMA
     Dosage: 4PUFF FOUR TIMES PER DAY
     Route: 055
     Dates: start: 19800101
  3. OXYGEN [Concomitant]
  4. FLOVENT [Concomitant]
  5. ATROVENT [Concomitant]
  6. THEO-24 [Concomitant]

REACTIONS (4)
  - WHEEZING [None]
  - PRODUCT QUALITY ISSUE [None]
  - DRUG INEFFECTIVE [None]
  - DYSPNOEA [None]
